FAERS Safety Report 5953880-2 (Version None)
Quarter: 2008Q4

REPORT INFORMATION
  Report Type: 
  Country: None (occurrence: None)
  Receive Date: 20081114
  Receipt Date: 20081031
  Transmission Date: 20090506
  Serious: Yes (Hospitalization)
  Sender: FDA-Public Use
  Company Number: JP-PFIZER INC-2008094402

PATIENT
  Age: 69 Year
  Sex: Male

DRUGS (6)
  1. MIGLITOL TABLET [Suspect]
     Indication: TYPE 2 DIABETES MELLITUS
     Dosage: DAILY DOSE:150MG
     Route: 048
     Dates: start: 20080910, end: 20080928
  2. CALBLOCK [Suspect]
     Dosage: DAILY DOSE:8MG
     Route: 048
     Dates: start: 20080910
  3. ALL OTHER THERAPEUTIC PRODUCTS [Concomitant]
     Route: 048
  4. ASPIRIN [Concomitant]
     Route: 048
  5. TICLOPIDINE HYDROCHLORIDE [Concomitant]
     Route: 048
  6. MUCOSTA [Concomitant]
     Route: 048

REACTIONS (2)
  - ASTHENIA [None]
  - HEPATIC FUNCTION ABNORMAL [None]
